FAERS Safety Report 5468439-3 (Version None)
Quarter: 2007Q3

REPORT INFORMATION
  Report Type: 
  Country: None (occurrence: None)
  Receive Date: 20070926
  Receipt Date: 20070910
  Transmission Date: 20080115
  Serious: Yes (Death)
  Sender: FDA-Public Use
  Company Number: NL-BRISTOL-MYERS SQUIBB COMPANY-13918321

PATIENT
  Sex: Male

DRUGS (3)
  1. BLEOMYCIN [Suspect]
     Indication: PENIS CARCINOMA
     Route: 042
  2. CISPLATIN [Suspect]
     Indication: PENIS CARCINOMA
     Route: 042
  3. METHOTREXATE [Suspect]
     Indication: PENIS CARCINOMA
     Route: 042

REACTIONS (2)
  - LEUKOPENIA [None]
  - PNEUMONIA BACTERIAL [None]
